FAERS Safety Report 15218505 (Version 1)
Quarter: 2018Q3

REPORT INFORMATION
  Report Type: Spontaneous
  Country: US (occurrence: US)
  Receive Date: 20180730
  Receipt Date: 20180730
  Transmission Date: 20181010
  Serious: No
  Sender: FDA-Public Use
  Company Number: US-009507513-1101USA01983

PATIENT
  Age: 30 Year
  Sex: Female

DRUGS (3)
  1. LAMIVUDINE. [Suspect]
     Active Substance: LAMIVUDINE
     Dosage: TOTAL DAILY DOSE: 300, COURSE NUMBER: 1
     Route: 048
  2. ISENTRESS [Suspect]
     Active Substance: RALTEGRAVIR POTASSIUM
     Dosage: TOTAL DAILY DOSE: 800, COURSE NUMBER: 1
     Route: 048
  3. MARAVIROC [Suspect]
     Active Substance: MARAVIROC
     Dosage: TOTAL DAILY DOSE: 400, COURSE NUMBER: 1
     Route: 048

REACTIONS (2)
  - No adverse event [Unknown]
  - Maternal exposure during pregnancy [Recovered/Resolved]
